FAERS Safety Report 6928086-0 (Version None)
Quarter: 2010Q3

REPORT INFORMATION
  Report Type: 
  Country: None (occurrence: None)
  Receive Date: 20100812
  Receipt Date: 20100727
  Transmission Date: 20110219
  Serious: Yes (Hospitalization, Other)
  Sender: FDA-Public Use
  Company Number: 2010BI027248

PATIENT
  Age: 58 Year
  Sex: Male

DRUGS (9)
  1. ZEVALIN [Suspect]
     Indication: STEM CELL TRANSPLANT
     Dosage: 0.4 MCI/KG;1X;IV
     Route: 042
     Dates: start: 20100201, end: 20100201
  2. AMOXICILLIN [Concomitant]
  3. BACTRIM [Concomitant]
  4. ZELITREX [Concomitant]
  5. FLUDARABINE [Concomitant]
  6. RITUXIMAB [Concomitant]
  7. BUSUKLFAN [Concomitant]
  8. THYMOGLOBULIN [Concomitant]
  9. CYCLOSPORINE [Concomitant]

REACTIONS (6)
  - BONE MARROW FAILURE [None]
  - CHILLS [None]
  - ERYTHEMA [None]
  - GASTROINTESTINAL DISORDER [None]
  - HYPERTHERMIA [None]
  - NEUTROPENIA [None]
